FAERS Safety Report 7124864-6 (Version None)
Quarter: 2010Q4

REPORT INFORMATION
  Report Type: 
  Country: None (occurrence: None)
  Receive Date: 20101123
  Receipt Date: 20101123
  Transmission Date: 20110411
  Serious: No
  Sender: FDA-Public Use
  Company Number: None

PATIENT
  Sex: Female
  Weight: 74.8435 kg

DRUGS (2)
  1. SEROQUEL [Suspect]
     Indication: ANXIETY
     Dosage: 1 ABOUT AN HOUR BEFORE BED 1 PER DAY
     Dates: start: 20060501, end: 20090701
  2. SEROQUEL [Suspect]
     Indication: INSOMNIA
     Dosage: 1 ABOUT AN HOUR BEFORE BED 1 PER DAY
     Dates: start: 20060501, end: 20090701

REACTIONS (7)
  - DREAMY STATE [None]
  - EPISTAXIS [None]
  - INSOMNIA [None]
  - MOUTH HAEMORRHAGE [None]
  - PAROSMIA [None]
  - PERIORBITAL HAEMATOMA [None]
  - SCREAMING [None]
